FAERS Safety Report 11071590 (Version 2)
Quarter: 2015Q3

REPORT INFORMATION
  Report Type: Spontaneous
  Country: FR (occurrence: FR)
  Receive Date: 20150428
  Receipt Date: 20150707
  Transmission Date: 20151125
  Serious: Yes (Hospitalization)
  Sender: FDA-Public Use
  Company Number: FR-ROCHE-1568642

PATIENT
  Age: 48 Year
  Sex: Male

DRUGS (5)
  1. 5-FLUOROURACIL [Concomitant]
     Active Substance: FLUOROURACIL
  2. HERCEPTIN [Concomitant]
     Active Substance: TRASTUZUMAB
  3. CISPLATINE [Concomitant]
     Active Substance: CISPLATIN
  4. XELODA [Suspect]
     Active Substance: CAPECITABINE
     Indication: OESOPHAGEAL CANCER METASTATIC
     Route: 048
     Dates: start: 20141203, end: 20141217
  5. ESOMEPRAZOLE [Suspect]
     Active Substance: ESOMEPRAZOLE
     Indication: PRODUCT USED FOR UNKNOWN INDICATION
     Route: 048
     Dates: start: 201407, end: 20150113

REACTIONS (5)
  - Diarrhoea [Recovered/Resolved]
  - Tetany [Recovered/Resolved]
  - Hypocalcaemia [Recovered/Resolved]
  - Arrhythmia [Recovered/Resolved]
  - Hypomagnesaemia [Recovering/Resolving]

NARRATIVE: CASE EVENT DATE: 201412
